FAERS Safety Report 8862463 (Version 1)
Quarter: 2012Q4

REPORT INFORMATION
  Report Type: 
  Country: US (occurrence: US)
  Receive Date: 20121026
  Receipt Date: 20121026
  Transmission Date: 20130627
  Serious: Yes (Hospitalization)
  Sender: FDA-Public Use
  Company Number: US-BAYER-2012-112571

PATIENT
  Age: 34 Year
  Sex: Female

DRUGS (10)
  1. YAZ [Suspect]
  2. WELLBUTRIN [Concomitant]
  3. SYNTHROID [Concomitant]
  4. RISPERDAL [Concomitant]
  5. RESTORIL [Concomitant]
  6. LITHIUM [Concomitant]
  7. LAMICTAL [Concomitant]
  8. KLONOPIN [Concomitant]
  9. CELEXA [Concomitant]
  10. PSEUDOEPHEDRINE [Concomitant]

REACTIONS (1)
  - Deep vein thrombosis [None]
